FAERS Safety Report 21978727 (Version 1)
Quarter: 2023Q1

REPORT INFORMATION
  Report Type: Spontaneous
  Country: US (occurrence: None)
  Receive Date: 20230209
  Receipt Date: 20230209
  Transmission Date: 20230417
  Serious: Yes (Death)
  Sender: FDA-Public Use
  Company Number: None

PATIENT
  Age: 94 Year
  Sex: Male

DRUGS (2)
  1. WARFARIN [Suspect]
     Active Substance: WARFARIN
  2. ASPIRIN [Suspect]
     Active Substance: ASPIRIN

REACTIONS (5)
  - Oxygen saturation decreased [None]
  - Hypertension [None]
  - International normalised ratio increased [None]
  - Subdural haematoma [None]
  - Unresponsive to stimuli [None]

NARRATIVE: CASE EVENT DATE: 20221004
